FAERS Safety Report 4541989-X (Version None)
Quarter: 2004Q4

REPORT INFORMATION
  Report Type: 
  Country: None (occurrence: None)
  Receive Date: 20041227
  Receipt Date: 20041214
  Transmission Date: 20050328
  Serious: Yes (Death, Other)
  Sender: FDA-Public Use
  Company Number: M04-341-112

PATIENT
  Age: 49 Year
  Sex: Female
  Weight: 45 kg

DRUGS (19)
  1. VELCADE [Suspect]
     Indication: MULTIPLE MYELOMA
     Dosage: SEE IMAGE
     Route: 040
     Dates: start: 20040309, end: 20040409
  2. VELCADE [Suspect]
     Indication: MULTIPLE MYELOMA
     Dosage: SEE IMAGE
     Route: 040
     Dates: start: 20040406, end: 20040514
  3. VELCADE [Suspect]
     Indication: MULTIPLE MYELOMA
     Dosage: SEE IMAGE
     Route: 040
     Dates: start: 20040514, end: 20040604
  4. STOOL SOFTENER [Concomitant]
  5. STARLIX [Concomitant]
  6. COMPAZINE [Concomitant]
  7. PULMICORT [Concomitant]
  8. ALBUTEROL [Concomitant]
  9. SYNTHROID [Concomitant]
  10. DURAGESIC [Concomitant]
  11. OXYCODONE HCL [Concomitant]
  12. NEURONTIN [Concomitant]
  13. THALIDOMIDE [Concomitant]
  14. VITAMIN E [Concomitant]
  15. EVISTA [Concomitant]
  16. PIOGLITAZONE HCL [Concomitant]
  17. DILANTIN [Concomitant]
  18. NADOLOL [Concomitant]
  19. MINOXIDIL [Concomitant]

REACTIONS (14)
  - BLOOD GLUCOSE INCREASED [None]
  - CONJUNCTIVITIS [None]
  - CONSTIPATION [None]
  - CRACKLES LUNG [None]
  - DECREASED APPETITE [None]
  - DISEASE PROGRESSION [None]
  - FATIGUE [None]
  - FLUID OVERLOAD [None]
  - HEPATITIS [None]
  - HYPOGLYCAEMIA [None]
  - LYMPHADENOPATHY [None]
  - NAIL BED BLEEDING [None]
  - PYREXIA [None]
  - RESPIRATORY FAILURE [None]
